FAERS Safety Report 8756340 (Version 2)
Quarter: 2012Q4

REPORT INFORMATION
  Report Type: Report from Study
  Country: CA (occurrence: IT)
  Receive Date: 20120828
  Receipt Date: 20120926
  Transmission Date: 20130627
  Serious: Yes (Disabling, Other)
  Sender: FDA-Public Use
  Company Number: IT-MERCK-1208CAN008024

PATIENT
  Age: 68 Year
  Sex: Male

DRUGS (2)
  1. RIBAVIRIN [Suspect]
     Dosage: UNK
     Route: 048
  2. PEGINTERFERON ALFA-2A [Concomitant]
     Indication: HEPATITIS C
     Dosage: 180 Microgram, qw
     Route: 058

REACTIONS (1)
  - Retinal vein occlusion [Recovered/Resolved with Sequelae]
